FAERS Safety Report 5938771-5 (Version None)
Quarter: 2008Q4

REPORT INFORMATION
  Report Type: 
  Country: None (occurrence: None)
  Receive Date: 20081103
  Receipt Date: 20081028
  Transmission Date: 20090506
  Serious: Yes (Life-Threatening, Hospitalization)
  Sender: FDA-Public Use
  Company Number: IT-BAYER-200828894GPV

PATIENT
  Age: 55 Year
  Sex: Male

DRUGS (28)
  1. CAMPATH [Suspect]
     Indication: PERIPHERAL T-CELL LYMPHOMA UNSPECIFIED
     Route: 058
     Dates: start: 20070723, end: 20070725
  2. CAMPATH [Suspect]
     Route: 058
     Dates: start: 20070816, end: 20070816
  3. CYCLOPHOSPHAMIDE [Suspect]
     Indication: PERIPHERAL T-CELL LYMPHOMA UNSPECIFIED
     Route: 065
     Dates: start: 20070723, end: 20070723
  4. CYCLOPHOSPHAMIDE [Suspect]
     Route: 065
     Dates: start: 20070816, end: 20070816
  5. DOXORUBICIN HCL [Suspect]
     Indication: PERIPHERAL T-CELL LYMPHOMA UNSPECIFIED
     Route: 065
     Dates: start: 20080816, end: 20080816
  6. DOXORUBICIN HCL [Suspect]
     Route: 065
     Dates: start: 20070723, end: 20070723
  7. VINCRISTINE [Suspect]
     Indication: PERIPHERAL T-CELL LYMPHOMA UNSPECIFIED
     Route: 065
     Dates: start: 20070723, end: 20070723
  8. VINCRISTINE [Suspect]
     Route: 065
     Dates: start: 20080816, end: 20080816
  9. PREDNISONE TAB [Suspect]
     Indication: PERIPHERAL T-CELL LYMPHOMA UNSPECIFIED
     Dates: start: 20070723, end: 20070726
  10. PREDNISONE TAB [Suspect]
     Dates: start: 20080816, end: 20080817
  11. CYCLOSPORINE [Suspect]
     Indication: DRUG USE FOR UNKNOWN INDICATION
     Dates: start: 20070623, end: 20080926
  12. TACROLIMUS [Suspect]
     Dates: start: 20080927
  13. CYCLOPHOSPHAMIDE [Suspect]
     Indication: PERIPHERAL T-CELL LYMPHOMA UNSPECIFIED
     Dates: start: 20071031, end: 20071031
  14. CYCLOPHOSPHAMIDE [Suspect]
     Dates: start: 20070920, end: 20070920
  15. METHOTREXATE [Suspect]
     Indication: PERIPHERAL T-CELL LYMPHOMA UNSPECIFIED
     Route: 037
     Dates: start: 20070723, end: 20070723
  16. METHOTREXATE [Suspect]
     Dates: start: 20070920, end: 20070920
  17. METHOTREXATE [Suspect]
     Dates: start: 20071031, end: 20071031
  18. METHOTREXATE [Suspect]
     Route: 037
     Dates: start: 20070816, end: 20070816
  19. ARA-C [Suspect]
     Indication: PERIPHERAL T-CELL LYMPHOMA UNSPECIFIED
     Route: 037
     Dates: start: 20070723, end: 20070723
  20. ARA-C [Suspect]
     Route: 037
     Dates: start: 20070816, end: 20070816
  21. ARA-C [Suspect]
     Dates: start: 20071101, end: 20071103
  22. ARA-C [Suspect]
     Dates: start: 20070921, end: 20070923
  23. DEXAMETHASONE 0.5MG TAB [Suspect]
     Route: 037
     Dates: start: 20070816, end: 20070816
  24. DEXAMETHASONE 0.5MG TAB [Suspect]
     Route: 037
     Dates: start: 20070723, end: 20070723
  25. METFORMIN HCL [Concomitant]
     Indication: DIABETES MELLITUS
  26. CYCLOPHOSPHAMIDE [Concomitant]
  27. ARA-C [Concomitant]
  28. NEUPOGEN [Concomitant]

REACTIONS (1)
  - THROMBOTIC THROMBOCYTOPENIC PURPURA [None]
